FAERS Safety Report 8921850 (Version 3)
Quarter: 2012Q4

REPORT INFORMATION
  Report Type: Report from Study
  Country: GB (occurrence: GB)
  Receive Date: 20121121
  Receipt Date: 20121207
  Transmission Date: 20130627
  Serious: Yes (Death, Life-Threatening, Hospitalization)
  Sender: FDA-Public Use
  Company Number: GB-ELI_LILLY_AND_COMPANY-GB201210009606

PATIENT
  Age: 77 Year
  Sex: Male
  Weight: 94.9 kg

DRUGS (12)
  1. PEMETREXED [Suspect]
     Indication: NON-SMALL CELL LUNG CANCER
     Dosage: 500 mg/m2, other
     Route: 042
     Dates: start: 20121019
  2. TAXOL [Suspect]
     Indication: NON-SMALL CELL LUNG CANCER
     Dosage: 175 mg/m2, other
     Route: 042
     Dates: start: 20121019
  3. ASPIRIN [Concomitant]
     Indication: ANGINA PECTORIS
     Dosage: 75 mg, qod
     Route: 048
  4. CLOPIDOGREL [Concomitant]
     Indication: ANGINA PECTORIS
     Dosage: 75 mg, qod
     Route: 048
  5. NICORANDIL [Concomitant]
     Indication: ANGINA PECTORIS
     Dosage: 30 mg, qod
     Route: 048
  6. BISPROLOL COMP [Concomitant]
     Indication: PROPHYLAXIS
     Dosage: 5 mg, qod
     Route: 048
  7. TILDIEM [Concomitant]
     Indication: PROPHYLAXIS
     Dosage: 20 mg, qod
     Route: 048
  8. METFORMIN [Concomitant]
     Indication: DIABETES MELLITUS
     Dosage: 850 mg, bid
     Route: 048
  9. SIMVASTATIN [Concomitant]
     Indication: BLOOD CHOLESTEROL INCREASED
     Dosage: 40 mg, qod
     Route: 048
  10. TAMSULOSIN [Concomitant]
     Indication: PROSTATE CANCER
     Dosage: 400 mg, qd
     Route: 048
  11. HUMULIN M3 [Concomitant]
     Indication: DIABETES MELLITUS
     Dosage: 30 u, each morning
     Route: 058
  12. HUMULIN M3 [Concomitant]
     Dosage: 40 u, each evening
     Route: 058

REACTIONS (4)
  - Cardiac arrest [Not Recovered/Not Resolved]
  - Sepsis [Fatal]
  - Malaise [Not Recovered/Not Resolved]
  - Dehydration [Not Recovered/Not Resolved]
